FAERS Safety Report 6171399-3 (Version None)
Quarter: 2009Q2

REPORT INFORMATION
  Report Type: 
  Country: None (occurrence: None)
  Receive Date: 20090427
  Receipt Date: 20090414
  Transmission Date: 20091009
  Serious: Yes (Hospitalization)
  Sender: FDA-Public Use
  Company Number: 2009-194975-NL

PATIENT
  Age: 43 Year
  Sex: Female

DRUGS (6)
  1. CHORIONIC GONADTROPIN [Suspect]
     Indication: IN VITRO FERTILISATION
     Dosage: DF
     Dates: start: 20090201, end: 20090221
  2. CHORIONIC GONADTROPIN [Suspect]
     Indication: IN VITRO FERTILISATION
     Dosage: DF
     Dates: start: 20090216, end: 20090221
  3. CHORIONIC GONADTROPIN [Suspect]
     Indication: IN VITRO FERTILISATION
     Dosage: DF
     Dates: start: 20081001
  4. GANIRELIX ACETATE INJECTION [Suspect]
     Indication: IN VITRO FERTILISATION
     Dosage: DF
     Dates: start: 20090216
  5. ENOXAPARIN SODIUM [Concomitant]
  6. ONDANSETRON HYDROCHLORIDE [Concomitant]

REACTIONS (6)
  - ABORTED PREGNANCY [None]
  - DRUG EXPOSURE DURING PREGNANCY [None]
  - HAEMATOCRIT INCREASED [None]
  - OVARIAN HYPERSTIMULATION SYNDROME [None]
  - PREGNANCY [None]
  - UTERINE DILATION AND CURETTAGE [None]
